FAERS Safety Report 7788513-6 (Version None)
Quarter: 2011Q3

REPORT INFORMATION
  Report Type: 
  Country: None (occurrence: None)
  Receive Date: 20110930
  Receipt Date: 20110926
  Transmission Date: 20111222
  Serious: Yes (Death, Other)
  Sender: FDA-Public Use
  Company Number: PHEH2011US01433

PATIENT
  Sex: Male

DRUGS (3)
  1. METHOTREXATE [Concomitant]
  2. PREDNISONE [Concomitant]
  3. TEKTURNA [Suspect]
     Dosage: 150 MG, UNK
     Dates: start: 20100322

REACTIONS (4)
  - ENTEROBACTER SEPSIS [None]
  - SMALL INTESTINAL OBSTRUCTION [None]
  - FEMORAL HERNIA, OBSTRUCTIVE [None]
  - CHRONIC OBSTRUCTIVE PULMONARY DISEASE [None]
